FAERS Safety Report 5476370-2 (Version None)
Quarter: 2007Q4

REPORT INFORMATION
  Report Type: 
  Country: None (occurrence: None)
  Receive Date: 20071003
  Receipt Date: 20070921
  Transmission Date: 20080405
  Serious: Yes (Other)
  Sender: FDA-Public Use
  Company Number: GB-PFIZER INC-2007079376

PATIENT
  Age: 48 Year
  Sex: Female

DRUGS (2)
  1. CHAMPIX [Suspect]
     Indication: SMOKING CESSATION THERAPY
     Route: 048
     Dates: start: 20070810, end: 20070825
  2. CO-DYDRAMOL [Concomitant]
     Route: 048

REACTIONS (2)
  - FEELING ABNORMAL [None]
  - NAUSEA [None]
